FAERS Safety Report 22866573 (Version 2)
Quarter: 2024Q3

REPORT INFORMATION
  Report Type: Report from Study
  Country: US (occurrence: US)
  Receive Date: 20230825
  Receipt Date: 20240805
  Transmission Date: 20241017
  Serious: Yes (Hospitalization)
  Sender: ROCHE
  Company Number: US-ROCHE-3405977

PATIENT
  Age: 44 Year
  Sex: Female

DRUGS (8)
  1. OCREVUS [Suspect]
     Active Substance: OCRELIZUMAB
     Indication: Multiple sclerosis
     Route: 042
     Dates: start: 20230112
  2. OCREVUS [Suspect]
     Active Substance: OCRELIZUMAB
     Indication: Autoimmune disorder
     Route: 042
  3. PROTONIX [Concomitant]
     Active Substance: PANTOPRAZOLE SODIUM
  4. LYRICA [Concomitant]
     Active Substance: PREGABALIN
  5. IBUPROFEN [Concomitant]
     Active Substance: IBUPROFEN
  6. FLUOXETINE [Concomitant]
     Active Substance: FLUOXETINE HYDROCHLORIDE
  7. FLEXERIL [Concomitant]
     Active Substance: CYCLOBENZAPRINE HYDROCHLORIDE
  8. BENADRYL [Concomitant]
     Active Substance: DIPHENHYDRAMINE HYDROCHLORIDE

REACTIONS (3)
  - Pneumonia [Recovered/Resolved]
  - Urinary tract infection [Recovered/Resolved]
  - Seizure [Unknown]

NARRATIVE: CASE EVENT DATE: 20230718
